FAERS Safety Report 13751535 (Version 1)
Quarter: 2017Q3

REPORT INFORMATION
  Report Type: Not Available
  Country: US (occurrence: US)
  Receive Date: 20170713
  Receipt Date: 20170713
  Transmission Date: 20171127
  Serious: Yes (Hospitalization)
  Sender: FDA-Public Use
  Company Number: US-ANIPHARMA-2017-US-007870

PATIENT
  Age: 65 Year
  Sex: Female

DRUGS (2)
  1. PYRIDOSTIGMINE (NON-SPECIFIC) [Suspect]
     Active Substance: PYRIDOSTIGMINE
     Dosage: 60MG EVERY 8 HOURS
     Route: 048
  2. METHYLPREDNISOLONE. [Concomitant]
     Active Substance: METHYLPREDNISOLONE
     Dosage: 125MG DAILY
     Route: 042

REACTIONS (2)
  - Cardiac arrest [Recovered/Resolved]
  - Sinoatrial block [Recovered/Resolved]
